FAERS Safety Report 5612179-4 (Version None)
Quarter: 2008Q1

REPORT INFORMATION
  Report Type: 
  Country: None (occurrence: None)
  Receive Date: 20080204
  Receipt Date: 20080121
  Transmission Date: 20080703
  Serious: Yes (Death, Hospitalization)
  Sender: FDA-Public Use
  Company Number: JP-AMGEN-US255672

PATIENT
  Sex: Female
  Weight: 51 kg

DRUGS (7)
  1. ENBREL [Suspect]
     Indication: RHEUMATOID ARTHRITIS
     Route: 058
     Dates: start: 20070709, end: 20071115
  2. KETOPROFEN [Concomitant]
     Dosage: UNSPECIFIED
     Route: 065
  3. DECADRON [Concomitant]
     Dosage: UNSPECIFIED
     Route: 051
  4. LOXONIN [Concomitant]
     Dosage: UNSPECIFIED
     Route: 048
  5. MARZULENE S [Concomitant]
     Dosage: UNSPECIFIED
     Route: 048
  6. PREDONINE [Concomitant]
     Dosage: UNSPECIFIED
     Route: 048
  7. GASTER [Concomitant]
     Dosage: UNSPECIFIED
     Route: 048

REACTIONS (1)
  - INTERSTITIAL LUNG DISEASE [None]
